FAERS Safety Report 6303706-2 (Version None)
Quarter: 2009Q3

REPORT INFORMATION
  Report Type: 
  Country: None (occurrence: None)
  Receive Date: 20090810
  Receipt Date: 20090804
  Transmission Date: 20100115
  Serious: Yes (Other)
  Sender: FDA-Public Use
  Company Number: US-AMGEN-QUU357448

PATIENT
  Sex: Male
  Weight: 79.9 kg

DRUGS (3)
  1. ARANESP [Suspect]
     Indication: ANAEMIA OF MALIGNANT DISEASE
     Route: 058
     Dates: start: 20081208, end: 20090709
  2. FLUDARABINE PHOSPHATE [Concomitant]
     Dates: end: 20081201
  3. RITUXAN [Concomitant]
     Dates: start: 20080820, end: 20081101

REACTIONS (2)
  - APLASIA PURE RED CELL [None]
  - DRUG INEFFECTIVE [None]
